FAERS Safety Report 6451074-8 (Version None)
Quarter: 2009Q4

REPORT INFORMATION
  Report Type: 
  Country: None (occurrence: None)
  Receive Date: 20091123
  Receipt Date: 20091111
  Transmission Date: 20100525
  Serious: Yes (Life-Threatening)
  Sender: FDA-Public Use
  Company Number: SI-PFIZER INC-2009279516

PATIENT
  Age: 63 Year
  Sex: Male
  Weight: 72 kg

DRUGS (6)
  1. SUTENT [Suspect]
     Indication: METASTATIC RENAL CELL CARCINOMA
     Dosage: 50 MG, 1X/DAY
     Route: 048
     Dates: start: 20090619, end: 20090717
  2. SUTENT [Suspect]
     Dosage: 37.5 MG, 1X/DAY
     Route: 048
     Dates: start: 20090731
  3. KEPPRA [Suspect]
     Indication: EPILEPSY
     Dosage: UNK
  4. DALTEPARIN SODIUM [Concomitant]
     Indication: DEEP VEIN THROMBOSIS
     Dosage: 7500 IU, 1X/DAY
     Route: 058
  5. METHYLPREDNISOLONE [Concomitant]
     Dosage: UNK
     Route: 048
  6. PIPERACILLIN SODIUM AND TAZOBACTAM SODIUM [Concomitant]
     Indication: INFECTION
     Dosage: 4.5 G, 4X/DAY
     Route: 042

REACTIONS (6)
  - DEEP VEIN THROMBOSIS [None]
  - HEPATIC ENZYME INCREASED [None]
  - LEUKOPENIA [None]
  - NEUTROPENIA [None]
  - PULMONARY EMBOLISM [None]
  - THROMBOCYTOPENIA [None]
